FAERS Safety Report 6222524-7 (Version None)
Quarter: 2009Q2

REPORT INFORMATION
  Report Type: 
  Country: None (occurrence: None)
  Receive Date: 20090609
  Receipt Date: 20090609
  Transmission Date: 20091009
  Serious: Yes (Hospitalization)
  Sender: FDA-Public Use
  Company Number: None

PATIENT
  Sex: Female
  Weight: 69.8539 kg

DRUGS (4)
  1. DIVAGEL 0.1% [Suspect]
     Indication: AUTONOMIC NERVOUS SYSTEM IMBALANCE
     Dosage: APPLY ONE PAQUET DAILY TOP
     Route: 061
     Dates: start: 20090325, end: 20090425
  2. ADDERALL 10 [Concomitant]
  3. RESTORIL [Concomitant]
  4. ULTRAM [Concomitant]

REACTIONS (4)
  - GAIT DISTURBANCE [None]
  - HYPOAESTHESIA [None]
  - MIGRAINE [None]
  - PARAESTHESIA [None]
